FAERS Safety Report 20909444 (Version 1)
Quarter: 2022Q2

REPORT INFORMATION
  Report Type: Spontaneous
  Country: CA (occurrence: CA)
  Receive Date: 20220603
  Receipt Date: 20220603
  Transmission Date: 20220720
  Serious: Yes (Hospitalization, Other)
  Sender: FDA-Public Use
  Company Number: None

PATIENT
  Sex: Male

DRUGS (2)
  1. INSULIN ASPART [Suspect]
     Active Substance: INSULIN ASPART
     Indication: Product used for unknown indication
     Dosage: UNK QD
     Route: 065
  2. INSULIN GLARGINE [Suspect]
     Active Substance: INSULIN GLARGINE
     Indication: Product used for unknown indication
     Dosage: UNK
     Route: 058

REACTIONS (12)
  - Abdominal distension [Not Recovered/Not Resolved]
  - Ascites [Not Recovered/Not Resolved]
  - Blood urea increased [Not Recovered/Not Resolved]
  - Eye oedema [Not Recovered/Not Resolved]
  - Face oedema [Not Recovered/Not Resolved]
  - Hydronephrosis [Not Recovered/Not Resolved]
  - Pericardial effusion [Not Recovered/Not Resolved]
  - Periorbital oedema [Not Recovered/Not Resolved]
  - Scrotal oedema [Not Recovered/Not Resolved]
  - Swelling [Not Recovered/Not Resolved]
  - Oedema peripheral [Not Recovered/Not Resolved]
  - Oedema [Not Recovered/Not Resolved]
